FAERS Safety Report 4340854-0 (Version None)
Quarter: 2004Q2

REPORT INFORMATION
  Report Type: 
  Country: None (occurrence: None)
  Receive Date: 20040419
  Receipt Date: 20031216
  Transmission Date: 20050107
  Serious: Yes (Other)
  Sender: FDA-Public Use
  Company Number: PHFR2003GB04802

PATIENT
  Age: 31 Year
  Sex: Male

DRUGS (3)
  1. CLOZARIL [Suspect]
     Indication: SCHIZOPHRENIA
     Dosage: 200 MG, QD
     Route: 048
     Dates: start: 20030601
  2. FLUOXETINE [Concomitant]
     Indication: SCHIZOPHRENIA
     Dosage: 40 MG, QD
     Route: 048
  3. HYOSCINE HYDROBROMIDE [Concomitant]
     Dosage: 300 MG, TID
     Route: 048

REACTIONS (2)
  - EJACULATION FAILURE [None]
  - INFERTILITY MALE [None]
